FAERS Safety Report 5794591-6 (Version None)
Quarter: 2008Q2

REPORT INFORMATION
  Report Type: 
  Country: None (occurrence: None)
  Receive Date: 20080625
  Receipt Date: 20080610
  Transmission Date: 20081010
  Serious: Yes (Death, Hospitalization, Other)
  Sender: FDA-Public Use
  Company Number: 2008S1010073

PATIENT
  Age: 73 Year
  Sex: Female
  Weight: 55 kg

DRUGS (6)
  1. SUNITINIB MALATE (SUNITINIB MALATE) [Suspect]
     Indication: METASTATIC RENAL CELL CARCINOMA
     Dosage: 50 MG; DAILY; ORAL
     Route: 048
     Dates: start: 20060215, end: 20060303
  2. FENTANYL TRANSDERMAL SYSTEM [Suspect]
     Indication: PAIN
     Dosage: 100 UG; EVERY HOUR; TRANSDERMAL
     Route: 062
     Dates: start: 20051001, end: 20060303
  3. FENTANYL TRANSDERMAL SYSTEM [Suspect]
     Indication: PAIN
     Dosage: 100 UG; EVERY HOUR; TRANSDERMAL
     Route: 062
     Dates: start: 20060304, end: 20060322
  4. AROMASIN [Concomitant]
  5. ALIZAPRIDE [Concomitant]
  6. ZOLEDRONIC ACID [Concomitant]

REACTIONS (6)
  - DISLOCATION OF VERTEBRA [None]
  - DRUG INTERACTION [None]
  - HAEMORRHAGE [None]
  - MUSCULAR WEAKNESS [None]
  - RESPIRATORY FAILURE [None]
  - SOMNOLENCE [None]
